FAERS Safety Report 5193408-0 (Version None)
Quarter: 2006Q4

REPORT INFORMATION
  Report Type: 
  Country: None (occurrence: None)
  Receive Date: 20061228
  Receipt Date: 20060417
  Transmission Date: 20070319
  Serious: No
  Sender: FDA-Public Use
  Company Number: US-GLAXOSMITHKLINE-A0601960A

PATIENT
  Age: 67 Year
  Sex: Female

DRUGS (6)
  1. FLONASE [Suspect]
     Dosage: 4SPR PER DAY
     Route: 045
     Dates: start: 20060101, end: 20060301
  2. PREMARIN [Concomitant]
  3. LIPITOR [Concomitant]
  4. NEXIUM [Concomitant]
  5. SYNTHROID [Concomitant]
  6. ASPIRIN [Concomitant]

REACTIONS (1)
  - EPISTAXIS [None]
